FAERS Safety Report 21158586 (Version 1)
Quarter: 2022Q3

REPORT INFORMATION
  Report Type: Spontaneous
  Country: AT (occurrence: AT)
  Receive Date: 20220802
  Receipt Date: 20220802
  Transmission Date: 20221026
  Serious: Yes (Hospitalization, Other)
  Sender: FDA-Public Use
  Company Number: AT-ROCHE-3049355

PATIENT
  Age: 45 Year
  Sex: Female
  Weight: 65 kg

DRUGS (38)
  1. DENOSUMAB [Suspect]
     Active Substance: DENOSUMAB
     Indication: HER2 positive breast cancer
     Dosage: 120 MILLIGRAM/KILOGRAM, Q4WK
     Route: 058
     Dates: start: 20190326
  2. TRASTUZUMAB [Suspect]
     Active Substance: TRASTUZUMAB
     Indication: HER2 positive breast cancer
     Dosage: 6 MILLIGRAM/KILOGRAM, Q3WK
     Route: 065
     Dates: start: 20181016, end: 20200226
  3. CAPECITABINE [Suspect]
     Active Substance: CAPECITABINE
     Indication: HER2 positive breast cancer
     Dosage: 2000 MILLIGRAM, QD
     Route: 048
     Dates: start: 20200715, end: 202109
  4. LAPATINIB [Suspect]
     Active Substance: LAPATINIB
     Indication: HER2 positive breast cancer
     Dosage: 1250 MILLIGRAM, QD
     Route: 048
     Dates: start: 20200715, end: 20210804
  5. VINORELBINE [Suspect]
     Active Substance: VINORELBINE TARTRATE
     Indication: HER2 positive breast cancer
     Dosage: 30 MILLIGRAM/SQ. METER (DAY1+DAY8 FROM 28 DAYS)
     Route: 040
     Dates: start: 20210927
  6. PERTUZUMAB [Suspect]
     Active Substance: PERTUZUMAB
     Indication: HER2 positive breast cancer
     Dosage: 420 MILLIGRAM, Q3WK
     Route: 040
     Dates: start: 20181016, end: 20200226
  7. PACLITAXEL [Suspect]
     Active Substance: PACLITAXEL
     Indication: HER2 positive breast cancer
     Dosage: 138.1 MILLIGRAM/KILOGRAM, QWK
     Route: 040
     Dates: start: 20181017, end: 20200226
  8. ADO-TRASTUZUMAB EMTANSINE [Suspect]
     Active Substance: ADO-TRASTUZUMAB EMTANSINE
     Indication: HER2 positive breast cancer
     Dosage: 3.6 MILLIGRAM/KILOGRAM, Q3WK
     Route: 040
     Dates: start: 20200227, end: 20200703
  9. POLYETHYLENE GLYCOL 3350\POTASSIUM CHLORIDE\SODIUM BICARBONATE\SODIUM [Concomitant]
     Active Substance: POLYETHYLENE GLYCOL 3350\POTASSIUM CHLORIDE\SODIUM BICARBONATE\SODIUM CHLORIDE
     Dosage: 13.8 GRAM, QD
     Route: 048
     Dates: start: 20181023
  10. LACTULOSE [Concomitant]
     Active Substance: LACTULOSE
     Dosage: 1 UNIT AS NECESSARY
     Route: 048
     Dates: start: 20200826
  11. Selexid [Concomitant]
     Dosage: 200 MILLIGRAM, QD
     Route: 048
     Dates: start: 20191016, end: 20191020
  12. BUPRETEC [Concomitant]
     Dosage: 35.00 OTHER MCG/H1 TIME PER 4 DAYS
     Route: 062
     Dates: start: 20211025
  13. HYDROMORPHONE HYDROCHLORIDE [Concomitant]
     Active Substance: HYDROMORPHONE HYDROCHLORIDE
     Dosage: 8 MILLIGRAM
     Route: 048
     Dates: start: 20200826, end: 20200917
  14. HYDROMORPHONE HYDROCHLORIDE [Concomitant]
     Active Substance: HYDROMORPHONE HYDROCHLORIDE
     Dosage: 2.6 MILLIGRAM
     Route: 048
     Dates: start: 20200826, end: 20200917
  15. HYDROMORPHONE HYDROCHLORIDE [Concomitant]
     Active Substance: HYDROMORPHONE HYDROCHLORIDE
     Dosage: 1.3 MILLIGRAM, ONCE AS NECESSARY
     Route: 048
     Dates: start: 20211027
  16. DEXAMETHASONE [Concomitant]
     Active Substance: DEXAMETHASONE
     Dosage: UNK
     Dates: start: 20211105
  17. DIPYRONE [Concomitant]
     Active Substance: DIPYRONE
     Dosage: UNK
  18. RANITIDINE HYDROCHLORIDE [Concomitant]
     Active Substance: RANITIDINE HYDROCHLORIDE
     Dosage: 50 MILLIGRAM, QWK
     Route: 040
     Dates: start: 20181017, end: 20200703
  19. EMEND [Concomitant]
     Active Substance: APREPITANT
     Dosage: 125 MILLIGRAM, QWK
     Route: 048
     Dates: start: 20181120, end: 20200703
  20. ZOFRAN [Concomitant]
     Active Substance: ONDANSETRON HYDROCHLORIDE
     Dosage: 8 MILLIGRAM, QWK
     Route: 040
     Dates: start: 20181017, end: 20200703
  21. Astec [Concomitant]
     Dosage: 35 MICROGRAM, ONCE EVERY 3 DAYS
     Route: 062
     Dates: start: 20181023
  22. ZOFRAN [Concomitant]
     Active Substance: ONDANSETRON HYDROCHLORIDE
     Dosage: 4 MILLIGRAM, 1-0-1
     Route: 060
     Dates: start: 20181023
  23. BETAMETHASONE DIPROPIONATE [Concomitant]
     Active Substance: BETAMETHASONE DIPROPIONATE
     Dosage: 60 MILLIGRAM
     Route: 040
     Dates: start: 20200703
  24. BETAMETHASONE DIPROPIONATE [Concomitant]
     Active Substance: BETAMETHASONE DIPROPIONATE
     Dosage: ONCE DAILY
     Route: 061
     Dates: start: 20190108, end: 20190114
  25. CAPSAICIN [Concomitant]
     Active Substance: CAPSAICIN
     Dosage: 0.03 PERCENT
     Route: 061
     Dates: start: 20200826, end: 20200917
  26. FUCIDIN [Concomitant]
     Active Substance: FUSIDATE SODIUM
     Dosage: 250 MILLIGRAM, QD
     Route: 048
     Dates: start: 20181113, end: 20181120
  27. CLINDAMYCIN [Concomitant]
     Active Substance: CLINDAMYCIN
     Dosage: 300 MILLIGRAM, 2-2-2
     Route: 048
     Dates: start: 20181113, end: 20181119
  28. Baneocin [Concomitant]
     Dosage: ONCE DAILY
     Route: 061
     Dates: start: 20190108, end: 20190114
  29. PANTOPRAZOLE SODIUM [Concomitant]
     Active Substance: PANTOPRAZOLE SODIUM
     Dosage: UNK
  30. BUPRENORPHINE HYDROCHLORIDE [Concomitant]
     Active Substance: BUPRENORPHINE HYDROCHLORIDE
     Dosage: 0.2 MILLIGRAM, 1 TIME AS NECESSARY
     Route: 060
     Dates: start: 20181023
  31. DIPHENHYDRAMINE HYDROCHLORIDE [Concomitant]
     Active Substance: DIPHENHYDRAMINE HYDROCHLORIDE
     Dosage: 60 MILLIGRAM, QWK
     Route: 040
     Dates: start: 20200703
  32. Paspertin [Concomitant]
     Dosage: 10 MILLIGRAM, 1-1-1
     Route: 048
     Dates: start: 20181023
  33. NEURONTIN [Concomitant]
     Active Substance: GABAPENTIN
     Dosage: UNK
     Dates: start: 20211027
  34. AMOXICILLIN\CLAVULANATE POTASSIUM [Concomitant]
     Active Substance: AMOXICILLIN\CLAVULANATE POTASSIUM
     Dosage: 1 GRAM, QD
     Route: 048
     Dates: start: 20190926, end: 20191005
  35. Paracodin [Concomitant]
     Dosage: 20 DROP, 20-20-20
     Route: 048
     Dates: start: 20180715
  36. METAMIZOLE [Concomitant]
     Active Substance: METAMIZOLE
     Dosage: 500 MILLIGRAM, 2-2-2
     Route: 048
     Dates: start: 20181023
  37. LEVETIRACETAM [Concomitant]
     Active Substance: LEVETIRACETAM
     Dosage: 100 MILLIGRAM, 1-0-1
     Route: 048
     Dates: start: 20211125
  38. CANDESARTAN [Concomitant]
     Active Substance: CANDESARTAN
     Dosage: UNK

REACTIONS (1)
  - Cerebral vasoconstriction [Recovering/Resolving]

NARRATIVE: CASE EVENT DATE: 20211025
